FAERS Safety Report 9996551 (Version 1)
Quarter: 2014Q1

REPORT INFORMATION
  Report Type: Spontaneous
  Country: US (occurrence: None)
  Receive Date: 20140310
  Receipt Date: 20140310
  Transmission Date: 20141002
  Serious: Yes (Other)
  Sender: FDA-Public Use
  Company Number: None

PATIENT
  Age: 59 Year
  Sex: Male

DRUGS (4)
  1. AFINITOR [Suspect]
     Indication: RENAL CANCER
     Dosage: 10 MG QOD;ALT W/5MG QOD
     Route: 048
  2. HYDROCODONE-APAP (WATSON LABORATORIES) [Concomitant]
  3. OXYCODONE [Concomitant]
  4. CHLORPROMAZINE [Concomitant]

REACTIONS (1)
  - Anaemia [None]
